FAERS Safety Report 6892321-8 (Version None)
Quarter: 2010Q3

REPORT INFORMATION
  Report Type: 
  Country: None (occurrence: None)
  Receive Date: 20100731
  Receipt Date: 20080725
  Transmission Date: 20110219
  Serious: No
  Sender: FDA-Public Use
  Company Number: US-PFIZER INC-2008031281

PATIENT
  Sex: Female
  Weight: 68.04 kg

DRUGS (3)
  1. AMLODIPINE [Suspect]
     Indication: HYPERTENSION
     Route: 048
     Dates: start: 20070101
  2. HYZAAR [Concomitant]
  3. INSULIN [Concomitant]

REACTIONS (1)
  - CHOKING SENSATION [None]
